FAERS Safety Report 15213750 (Version 1)
Quarter: 2018Q3

REPORT INFORMATION
  Report Type: Spontaneous
  Country: US (occurrence: US)
  Receive Date: 20180730
  Receipt Date: 20180730
  Transmission Date: 20181010
  Serious: Yes (Other)
  Sender: FDA-Public Use
  Company Number: US-SA-2017SA263585

PATIENT
  Age: 67 Year
  Sex: Female
  Weight: 54 kg

DRUGS (10)
  1. FLUOROURACIL. [Concomitant]
     Active Substance: FLUOROURACIL
  2. TAXOTERE [Suspect]
     Active Substance: DOCETAXEL
     Indication: BREAST CANCER FEMALE
     Dosage: 100 MG/M2,Q3W
     Route: 042
     Dates: start: 19990630, end: 19990630
  3. TAXOTERE [Suspect]
     Active Substance: DOCETAXEL
     Dosage: 75 MG/M2,Q3W
     Route: 042
     Dates: start: 19990908, end: 19990908
  4. PARACETAMOL [Concomitant]
     Active Substance: ACETAMINOPHEN
  5. ISOSORBIDE. [Concomitant]
     Active Substance: ISOSORBIDE
  6. CYTOXAN [Concomitant]
     Active Substance: CYCLOPHOSPHAMIDE
  7. DEPAKOTE [Concomitant]
     Active Substance: DIVALPROEX SODIUM
  8. TREXALL [Concomitant]
     Active Substance: METHOTREXATE SODIUM
  9. INSULIN [Concomitant]
     Active Substance: INSULIN NOS
  10. GLYCERYL TRINITRATE [Concomitant]
     Active Substance: NITROGLYCERIN

REACTIONS (1)
  - Alopecia [Recovering/Resolving]

NARRATIVE: CASE EVENT DATE: 20000309
